FAERS Safety Report 5306074-8 (Version None)
Quarter: 2007Q2

REPORT INFORMATION
  Report Type: 
  Country: None (occurrence: None)
  Receive Date: 20070424
  Receipt Date: 20070123
  Transmission Date: 20071010
  Serious: Yes (Other)
  Sender: FDA-Public Use
  Company Number: US-BRISTOL-MYERS SQUIBB COMPANY-13652805

PATIENT
  Sex: Male

DRUGS (1)
  1. HYDROXYUREA [Suspect]
     Indication: POLYCYTHAEMIA

REACTIONS (2)
  - GANGRENE [None]
  - SKIN ULCER [None]
